FAERS Safety Report 8983307 (Version 3)
Quarter: 2013Q2

REPORT INFORMATION
  Report Type: Spontaneous
  Country: DK (occurrence: DK)
  Receive Date: 20121224
  Receipt Date: 20130621
  Transmission Date: 20140414
  Serious: Yes (Death, Other)
  Sender: FDA-Public Use
  Company Number: PHHY2012DK118638

PATIENT
  Age: 76 Year
  Sex: Male

DRUGS (6)
  1. ZOMETA [Suspect]
     Indication: METASTASES TO BONE
     Dosage: 4 MG/100ML, EVERY 4 WEEKS
     Route: 042
     Dates: start: 20090325
  2. PREDNISOLONE [Suspect]
     Dosage: 25 MG, DAILY
     Route: 048
  3. DUROGESIC [Concomitant]
     Dosage: 50 UG, PER HOUR
     Route: 062
  4. PAMOL [Concomitant]
     Dosage: 8 DF, DAILY
     Route: 048
  5. METADONE [Concomitant]
     Dosage: 2.5 MG, TID
  6. SEROQUEL [Concomitant]
     Dosage: 25 MG, TID

REACTIONS (4)
  - Prostate cancer [Fatal]
  - Osteonecrosis of jaw [Not Recovered/Not Resolved]
  - Exposed bone in jaw [Unknown]
  - Bone lesion [Unknown]
